FAERS Safety Report 19467398 (Version 1)
Quarter: 2021Q2

REPORT INFORMATION
  Report Type: Spontaneous
  Country: US (occurrence: US)
  Receive Date: 20210627
  Receipt Date: 20210627
  Transmission Date: 20210717
  Serious: Yes (Hospitalization)
  Sender: FDA-Public Use
  Company Number: None

PATIENT
  Age: 87 Year
  Sex: Male
  Weight: 78.4 kg

DRUGS (13)
  1. NIFEDICAL XL [Concomitant]
     Active Substance: NIFEDIPINE
  2. CALCIUM 1000 + D [Concomitant]
  3. VITAMIN B12 [Concomitant]
     Active Substance: CYANOCOBALAMIN
  4. ABIRATERONE ACETATE 250 MG TABLET [Suspect]
     Active Substance: ABIRATERONE ACETATE
     Indication: PROSTATE CANCER
     Route: 048
     Dates: start: 20210604, end: 20210623
  5. FINASTERIDE. [Concomitant]
     Active Substance: FINASTERIDE
  6. METFORMIN HCL ER (MOD) [Concomitant]
  7. LUPRON DEPOT (3?MONTH) [Concomitant]
  8. RIVAROXABAN [Concomitant]
     Active Substance: RIVAROXABAN
  9. PREDNISONE. [Suspect]
     Active Substance: PREDNISONE
     Indication: PROSTATE CANCER
     Route: 048
     Dates: start: 20210604
  10. BETHANECHOL CHLORIDE. [Concomitant]
     Active Substance: BETHANECHOL CHLORIDE
  11. FISH OIL CONCENTRATE [Concomitant]
     Active Substance: FISH OIL
  12. TAMSULOSIN HCL [Concomitant]
     Active Substance: TAMSULOSIN HYDROCHLORIDE
  13. VITAMIN C [Concomitant]
     Active Substance: ASCORBIC ACID

REACTIONS (1)
  - Dysphagia [None]

NARRATIVE: CASE EVENT DATE: 20210623
